FAERS Safety Report 17517523 (Version 1)
Quarter: 2020Q1

REPORT INFORMATION
  Report Type: Spontaneous
  Country: US (occurrence: US)
  Receive Date: 20200309
  Receipt Date: 20200309
  Transmission Date: 20200409
  Serious: No
  Sender: FDA-Public Use
  Company Number: US-ZPM-02-2020-0004

PATIENT
  Sex: Male

DRUGS (2)
  1. ZYPITAMAG [Suspect]
     Active Substance: PITAVASTATIN
     Indication: HYPERLIPIDAEMIA
     Dosage: 4MG TABLET SPLIT NTO 4 1MG PIECES
     Route: 048
  2. LISINOPRIL. [Suspect]
     Active Substance: LISINOPRIL
     Indication: HYPERTENSION
     Dosage: UNKNOWN DOSAGE

REACTIONS (1)
  - Drug eruption [Recovered/Resolved]
